FAERS Safety Report 5752104-9 (Version None)
Quarter: 2008Q2

REPORT INFORMATION
  Report Type: 
  Country: None (occurrence: None)
  Receive Date: 20080529
  Receipt Date: 20080523
  Transmission Date: 20081010
  Serious: Yes (Other)
  Sender: FDA-Public Use
  Company Number: JP-BAYER-200810980BYL

PATIENT
  Sex: Female

DRUGS (10)
  1. ASPIRIN [Suspect]
     Indication: DRUG USE FOR UNKNOWN INDICATION
     Route: 048
     Dates: start: 20080423, end: 20080517
  2. INSULIN [Concomitant]
     Route: 065
  3. DOGMATYL [Concomitant]
     Route: 048
  4. SELBEX [Concomitant]
     Route: 048
  5. DEZOLAM [Concomitant]
     Route: 048
  6. LEXOTAN [Concomitant]
     Route: 048
  7. MEDICON [Concomitant]
     Route: 065
  8. PL [Concomitant]
     Route: 048
  9. MAO-BUSHI-SAISHIN-TO [Concomitant]
     Route: 048
  10. VOLTAREN [Concomitant]
     Route: 062

REACTIONS (2)
  - BLOOD GLUCOSE INCREASED [None]
  - BLOOD PRESSURE INCREASED [None]
